FAERS Safety Report 8577561 (Version 3)
Quarter: 2012Q4

REPORT INFORMATION
  Report Type: 
  Country: US (occurrence: US)
  Receive Date: 20120524
  Receipt Date: 20121112
  Transmission Date: 20130627
  Serious: Yes (Hospitalization)
  Sender: FDA-Public Use
  Company Number: US-BAYER-2012-050118

PATIENT
  Age: 35 Year
  Sex: Female
  Weight: 74.83 kg

DRUGS (15)
  1. YASMIN [Suspect]
     Indication: ACNE
     Dosage: UNK
     Dates: start: 200203, end: 200708
  2. YASMIN [Suspect]
     Indication: IRREGULAR MENSTRUATION
  3. YASMIN [Suspect]
     Indication: PREMENSTRUAL DYSPHORIC DISORDER
  4. YASMIN [Suspect]
     Indication: PREMENSTRUAL SYNDROME
  5. KLONOPIN [Concomitant]
     Dosage: 0.5 mg, take 2 HS
     Route: 048
     Dates: start: 20001028, end: 20070813
  6. XANAX [Concomitant]
     Indication: AGITATION
     Dosage: 0.5 -1mg, TID
     Route: 048
     Dates: start: 20010425, end: 20070903
  7. XANAX [Concomitant]
     Indication: ANXIETY
  8. AMBIEN [Concomitant]
     Dosage: 12.5 -10 mg HS
     Route: 048
     Dates: start: 20011220, end: 20100425
  9. PROZAC [Concomitant]
     Dosage: 40 mg, 2 QD
     Route: 048
     Dates: start: 20020214, end: 20101112
  10. DETROL LA [Concomitant]
     Dosage: 4 mg, one Q AM
     Route: 048
     Dates: start: 20060629, end: 20080121
  11. GEODON [Concomitant]
     Dosage: 20 mg, QD
     Route: 048
     Dates: start: 20060228, end: 20080206
  12. AMOXICILLIN [Concomitant]
     Dosage: 250 mg, UNK
     Route: 048
     Dates: start: 20071127
  13. FOLBIC [Concomitant]
     Dosage: one OD
     Route: 048
     Dates: start: 20070922, end: 20101018
  14. HYDROCODONE [Concomitant]
     Dosage: UNK
     Route: 048
     Dates: start: 20070627
  15. DARVON N [Concomitant]
     Indication: PAIN NOS
     Dosage: one daily
     Route: 048
     Dates: start: 20070716, end: 20080220

REACTIONS (4)
  - Deep vein thrombosis [None]
  - Pulmonary embolism [Recovered/Resolved]
  - Injury [Recovered/Resolved]
  - Pain [None]
